FAERS Safety Report 8636752 (Version 2)
Quarter: 2012Q4

REPORT INFORMATION
  Report Type: 
  Country: US (occurrence: US)
  Receive Date: 20120626
  Receipt Date: 20121101
  Transmission Date: 20130627
  Serious: Yes (Hospitalization, Other)
  Sender: FDA-Public Use
  Company Number: US-PFIZER INC-2012149185

PATIENT
  Age: 83 Year
  Sex: Female
  Weight: 73.47 kg

DRUGS (4)
  1. XALATAN [Suspect]
     Indication: GLAUCOMA
     Dosage: UNK
  2. LYRICA [Suspect]
     Indication: ACHE
     Dosage: UNK
  3. LYRICA [Suspect]
     Indication: PAIN
  4. SEROQUEL [Concomitant]
     Indication: SLEEP PROBLEM
     Dosage: UNK

REACTIONS (5)
  - Mental disorder [Unknown]
  - Visual acuity reduced [Unknown]
  - Rash [Unknown]
  - Dysphonia [Unknown]
  - Gait disturbance [Unknown]
